FAERS Safety Report 20752147 (Version 8)
Quarter: 2023Q1

REPORT INFORMATION
  Report Type: Report from Study
  Country: CL (occurrence: None)
  Receive Date: 20220426
  Receipt Date: 20230105
  Transmission Date: 20230418
  Serious: Yes (Hospitalization)
  Sender: FDA-Public Use
  Company Number: CL-ROCHE-3077903

PATIENT
  Age: 73 Year
  Sex: Male

DRUGS (11)
  1. ATEZOLIZUMAB [Suspect]
     Active Substance: ATEZOLIZUMAB
     Indication: Hormone-refractory prostate cancer
     Dosage: ATEZOLIZUMAB SUBSEQUENT DOSE ON 23/AUG/2021, 14/SEP/2021, 04/OCT/2021, 25/OCT/2021, 15/NOV/2021, 06/
     Route: 041
     Dates: start: 20210806
  2. CABOZANTINIB [Suspect]
     Active Substance: CABOZANTINIB
     Indication: Hormone-refractory prostate cancer
     Dosage: DATE OF MOST RECENT DOSE OF CABOZANTINIB PRIOR TO THE EVENT :17/MAR/2022
     Route: 048
     Dates: start: 20210806, end: 20210830
  3. CABOZANTINIB [Suspect]
     Active Substance: CABOZANTINIB
     Route: 048
     Dates: start: 20210831, end: 20210914
  4. CABOZANTINIB [Suspect]
     Active Substance: CABOZANTINIB
     Route: 048
     Dates: start: 20211004, end: 20211024
  5. CABOZANTINIB [Suspect]
     Active Substance: CABOZANTINIB
     Route: 048
     Dates: start: 20211115, end: 20220317
  6. CABOZANTINIB [Suspect]
     Active Substance: CABOZANTINIB
     Route: 048
     Dates: start: 20220412, end: 20220914
  7. LEVOTHYROXINE [Concomitant]
     Active Substance: LEVOTHYROXINE
     Dates: start: 20220212
  8. AMLODIPINE [Concomitant]
     Active Substance: AMLODIPINE BESYLATE
     Dates: start: 20210823
  9. AMLODIPINE [Concomitant]
     Active Substance: AMLODIPINE BESYLATE
     Dates: start: 20210823
  10. LOSARTAN [Concomitant]
     Active Substance: LOSARTAN
     Dates: start: 20200401
  11. LEVOTHYROXINE [Concomitant]
     Active Substance: LEVOTHYROXINE
     Dates: start: 20220212

REACTIONS (2)
  - Urinary tract infection [Recovered/Resolved]
  - Urinary tract abscess [Recovered/Resolved]

NARRATIVE: CASE EVENT DATE: 20220318
